FAERS Safety Report 7020368-X (Version None)
Quarter: 2010Q3

REPORT INFORMATION
  Report Type: 
  Country: None (occurrence: None)
  Receive Date: 20100927
  Receipt Date: 20100916
  Transmission Date: 20110219
  Serious: Yes (Other)
  Sender: FDA-Public Use
  Company Number: 002559

PATIENT
  Age: 26 Year
  Sex: Female

DRUGS (2)
  1. NEUPRO [Suspect]
     Indication: RESTLESS LEGS SYNDROME
     Dosage: TRANSDERMAL
     Route: 062
     Dates: start: 20090713, end: 20091203
  2. RIVOTRIL (RIVOTRIL) (NOT SPECIFIED) [Suspect]
     Indication: RESTLESS LEGS SYNDROME
     Dates: start: 20091203

REACTIONS (4)
  - DRUG EXPOSURE DURING PREGNANCY [None]
  - GESTATIONAL DIABETES [None]
  - PREGNANCY [None]
  - PREMATURE LABOUR [None]
